FAERS Safety Report 21447038 (Version 3)
Quarter: 2022Q4

REPORT INFORMATION
  Report Type: Spontaneous
  Country: CN (occurrence: CN)
  Receive Date: 20221012
  Receipt Date: 20221013
  Transmission Date: 20230113
  Serious: Yes (Death, Hospitalization, Other)
  Sender: FDA-Public Use
  Company Number: CN-PFIZER INC-202201196613

PATIENT
  Age: 71 Year
  Sex: Female
  Weight: 110 kg

DRUGS (2)
  1. LINEZOLID [Interacting]
     Active Substance: LINEZOLID
     Indication: Pneumonia
     Dosage: 600 MG, 2X/DAY
     Route: 042
  2. DAPAGLIFLOZIN [Interacting]
     Active Substance: DAPAGLIFLOZIN

REACTIONS (3)
  - Drug interaction [Fatal]
  - Myelosuppression [Fatal]
  - Hyponatraemia [Unknown]
